FAERS Safety Report 19713140 (Version 1)
Quarter: 2021Q3

REPORT INFORMATION
  Report Type: Spontaneous
  Country: US (occurrence: US)
  Receive Date: 20210817
  Receipt Date: 20210817
  Transmission Date: 20211014
  Serious: No
  Sender: FDA-Public Use
  Company Number: US-JAZZ-JPI-P-021390

PATIENT
  Age: 58 Year
  Sex: Female
  Weight: 86.36 kg

DRUGS (3)
  1. XYREM [Suspect]
     Active Substance: SODIUM OXYBATE
     Indication: NARCOLEPSY
     Dosage: 2 GRAM, BID
     Route: 048
     Dates: start: 20120507, end: 20120510
  2. SYNTHROID(LEVOTHYROXINE SODIUM) [Concomitant]
  3. PROVIGIL(MODAFINIL) [Concomitant]

REACTIONS (8)
  - Aphasia [Not Recovered/Not Resolved]
  - Confusional state [Not Recovered/Not Resolved]
  - Vomiting [Unknown]
  - Feeling abnormal [Not Recovered/Not Resolved]
  - Headache [Unknown]
  - Hangover [Unknown]
  - Dizziness [Unknown]
  - Nausea [Unknown]

NARRATIVE: CASE EVENT DATE: 2012
